FAERS Safety Report 14310638 (Version 6)
Quarter: 2018Q2

REPORT INFORMATION
  Report Type: Spontaneous
  Country: JP (occurrence: JP)
  Receive Date: 20171220
  Receipt Date: 20180427
  Transmission Date: 20180711
  Serious: Yes (Life-Threatening, Hospitalization, Disabling, Other)
  Sender: FDA-Public Use
  Company Number: JP-BEH-2017085987

PATIENT
  Age: 73 Year
  Sex: Male
  Weight: 57.5 kg

DRUGS (7)
  1. WARFARIN [Concomitant]
     Active Substance: WARFARIN
     Dosage: UNK
     Route: 048
     Dates: start: 20171221
  2. HEPARIN [Concomitant]
     Active Substance: HEPARIN SODIUM
     Dosage: 8000 IU, OD
     Route: 042
     Dates: start: 20171210, end: 20171210
  3. KAYTWO [Suspect]
     Active Substance: MENATETRENONE
     Dosage: 10 MG, SINGLE
     Route: 042
     Dates: start: 20171208, end: 20171208
  4. HEPARIN [Concomitant]
     Active Substance: HEPARIN SODIUM
     Dosage: 10000 IU, OD
     Route: 042
     Dates: start: 20171211, end: 20171211
  5. KCENTRA [Suspect]
     Active Substance: COAGULATION FACTOR IX HUMAN\COAGULATION FACTOR VII HUMAN\COAGULATION FACTOR X HUMAN\PROTEIN C\PROTEIN S HUMAN\PROTHROMBIN
     Indication: PROCOAGULANT THERAPY
  6. KCENTRA [Suspect]
     Active Substance: COAGULATION FACTOR IX HUMAN\COAGULATION FACTOR VII HUMAN\COAGULATION FACTOR X HUMAN\PROTEIN C\PROTEIN S HUMAN\PROTHROMBIN
     Indication: CEREBELLAR HAEMORRHAGE
     Dosage: 1475 IU, SINGLE
     Route: 042
     Dates: start: 20171208, end: 20171208
  7. WARFARIN [Concomitant]
     Active Substance: WARFARIN
     Indication: ATRIAL FIBRILLATION
     Dosage: UNK
     Route: 048
     Dates: end: 20171207

REACTIONS (8)
  - Carotid arterial embolus [Recovering/Resolving]
  - Pain in extremity [Recovering/Resolving]
  - Cerebral infarction [Recovered/Resolved with Sequelae]
  - Hemiplegia [Recovered/Resolved with Sequelae]
  - Atrial thrombosis [Unknown]
  - Embolic stroke [Recovered/Resolved with Sequelae]
  - Peripheral artery occlusion [Recovering/Resolving]
  - Aphasia [Recovered/Resolved with Sequelae]

NARRATIVE: CASE EVENT DATE: 20171211
